FAERS Safety Report 22635656 (Version 1)
Quarter: 2023Q2

REPORT INFORMATION
  Report Type: Spontaneous
  Country: US (occurrence: US)
  Receive Date: 20230623
  Receipt Date: 20230623
  Transmission Date: 20230721
  Serious: Yes (Hospitalization, Other)
  Sender: FDA-Public Use
  Company Number: US-ALXN-A202308276

PATIENT
  Age: 3 Year
  Sex: Male

DRUGS (2)
  1. ULTOMIRIS [Suspect]
     Active Substance: RAVULIZUMAB-CWVZ
     Indication: Haemolytic uraemic syndrome
     Dosage: UNK
     Route: 042
  2. ULTOMIRIS [Suspect]
     Active Substance: RAVULIZUMAB-CWVZ
     Indication: Off label use

REACTIONS (6)
  - Anaemia [Recovering/Resolving]
  - Anuria [Unknown]
  - Hypervolaemia [Unknown]
  - Proteinuria [Unknown]
  - Kidney enlargement [Unknown]
  - Off label use [Unknown]
